FAERS Safety Report 9529955 (Version 2)
Quarter: 2013Q4

REPORT INFORMATION
  Report Type: Spontaneous
  Country: CN (occurrence: CN)
  Receive Date: 20130917
  Receipt Date: 20131021
  Transmission Date: 20140711
  Serious: Yes (Other)
  Sender: FDA-Public Use
  Company Number: ALCN2013CN004630

PATIENT
  Sex: 0

DRUGS (4)
  1. TOBRADEX [Suspect]
     Indication: POSTOPERATIVE CARE
     Dosage: 1 DF, QID
     Route: 047
     Dates: start: 201209
  2. TOBRADEX [Suspect]
     Indication: POSTOPERATIVE CARE
     Dosage: UNK UNK, QID
     Route: 047
     Dates: start: 201209
  3. SYSTANE ULTRA HIGH PERFORMANCE [Suspect]
     Indication: POSTOPERATIVE CARE
     Dosage: 1 UNK, QID
     Route: 047
     Dates: start: 201209
  4. PRANOPROFEN [Concomitant]
     Indication: POSTOPERATIVE CARE
     Dosage: UNK, QID
     Route: 047
     Dates: start: 201209

REACTIONS (1)
  - Optic atrophy [Unknown]
